FAERS Safety Report 9517168 (Version 2)
Quarter: 2013Q3

REPORT INFORMATION
  Report Type: Spontaneous
  Country: US (occurrence: US)
  Receive Date: 20130911
  Receipt Date: 20130917
  Transmission Date: 20140515
  Serious: No
  Sender: FDA-Public Use
  Company Number: US-PFIZER INC-2013258901

PATIENT
  Sex: Female

DRUGS (2)
  1. MOTRIN IB [Suspect]
     Indication: ARTHRALGIA
     Dosage: FOUR CAPLETS, EVERY FOUR TO SIX HOURS
     Route: 048
  2. MOTRIN IB [Suspect]
     Indication: HERPES ZOSTER

REACTIONS (1)
  - Incorrect dose administered [Unknown]
